FAERS Safety Report 6647874-1 (Version None)
Quarter: 2010Q1

REPORT INFORMATION
  Report Type: 
  Country: None (occurrence: None)
  Receive Date: 20100324
  Receipt Date: 20100316
  Transmission Date: 20100710
  Serious: Yes (Hospitalization)
  Sender: FDA-Public Use
  Company Number: CH-ASTRAZENECA-2010SE11734

PATIENT
  Age: 47 Year
  Sex: Male

DRUGS (11)
  1. CRESTOR [Suspect]
     Route: 048
     Dates: start: 20090101, end: 20100110
  2. NEXIUM [Suspect]
     Route: 048
     Dates: start: 20090101, end: 20100110
  3. DAFALGAN [Suspect]
     Indication: PAIN
     Route: 048
     Dates: start: 20091214, end: 20100110
  4. NEBILET [Concomitant]
     Route: 048
     Dates: start: 20090101
  5. MARCUMAR [Concomitant]
     Route: 048
  6. ADALAT [Concomitant]
     Route: 048
  7. ASPIRIN [Concomitant]
     Route: 048
  8. MORPHINE [Concomitant]
     Route: 040
     Dates: start: 20100109, end: 20100109
  9. METOCLOPRAMIDE [Concomitant]
     Route: 041
     Dates: start: 20100109, end: 20100109
  10. BECOZYME [Concomitant]
  11. BENERVA [Concomitant]

REACTIONS (1)
  - HEPATOCELLULAR INJURY [None]
